FAERS Safety Report 11055178 (Version 1)
Quarter: 2015Q2

REPORT INFORMATION
  Report Type: Spontaneous
  Country: US (occurrence: US)
  Receive Date: 20150422
  Receipt Date: 20150422
  Transmission Date: 20150821
  Serious: Yes (Hospitalization)
  Sender: FDA-Public Use
  Company Number: US-SA-2015SA011059

PATIENT
  Age: 52 Year
  Sex: Female

DRUGS (5)
  1. PHENOBARBITAL. [Concomitant]
     Active Substance: PHENOBARBITAL
     Dosage: AT 1:00 A.M. AND 1:00 P.M.
  2. DILANTIN [Concomitant]
     Active Substance: PHENYTOIN
     Dosage: AT 2:00 A.M. AND 2:00 P.M.
  3. ENOXAPARIN SODIUM - WINTHROP [Suspect]
     Active Substance: ENOXAPARIN SODIUM
     Indication: COAGULOPATHY
     Route: 065
  4. WARFARIN [Interacting]
     Active Substance: WARFARIN
     Route: 065
  5. LOVENOX [Interacting]
     Active Substance: ENOXAPARIN SODIUM
     Indication: DEEP VEIN THROMBOSIS
     Route: 065

REACTIONS (4)
  - Thrombosis [Unknown]
  - Epistaxis [Unknown]
  - Nausea [Unknown]
  - Abdominal pain [Unknown]
